FAERS Safety Report 4414462-7 (Version None)
Quarter: 2004Q2

REPORT INFORMATION
  Report Type: 
  Country: None (occurrence: None)
  Receive Date: 20040630
  Receipt Date: 20040407
  Transmission Date: 20050107
  Serious: Yes (Other)
  Sender: FDA-Public Use
  Company Number: 2004024024

PATIENT
  Age: 47 Year
  Sex: Female
  Weight: 58.514 kg

DRUGS (2)
  1. ZOLOFT [Suspect]
     Indication: DEPRESSION
     Dosage: 200 MG DAILY ORAL
     Route: 048
     Dates: start: 20000101
  2. GABAPENTIN [Concomitant]

REACTIONS (9)
  - AGITATION [None]
  - ANXIETY [None]
  - BLOOD PRESSURE INCREASED [None]
  - DIZZINESS [None]
  - EMOTIONAL DISORDER [None]
  - HYPERHIDROSIS [None]
  - PARAESTHESIA [None]
  - TREMOR [None]
  - VISION BLURRED [None]
